FAERS Safety Report 17900287 (Version 1)
Quarter: 2020Q2

REPORT INFORMATION
  Report Type: Spontaneous
  Country: US (occurrence: US)
  Receive Date: 20200616
  Receipt Date: 20200616
  Transmission Date: 20200714
  Serious: No
  Sender: FDA-Public Use
  Company Number: US-PFIZER INC-2020231864

PATIENT
  Age: 72 Year
  Sex: Female

DRUGS (1)
  1. IBRANCE [Suspect]
     Active Substance: PALBOCICLIB
     Dosage: 100 MG
     Dates: start: 20200527

REACTIONS (5)
  - Constipation [Unknown]
  - Bone pain [Unknown]
  - Myalgia [Unknown]
  - Dyspepsia [Unknown]
  - White blood cell count decreased [Unknown]
